FAERS Safety Report 10458087 (Version 5)
Quarter: 2014Q4

REPORT INFORMATION
  Report Type: Spontaneous
  Country: US (occurrence: US)
  Receive Date: 20140917
  Receipt Date: 20141124
  Transmission Date: 20150528
  Serious: Yes (Hospitalization, Other)
  Sender: FDA-Public Use
  Company Number: US-AMGEN INC.-USASP2014070567

PATIENT
  Age: 65 Year
  Sex: Female
  Weight: 92.52 kg

DRUGS (1)
  1. ENBREL [Suspect]
     Active Substance: ETANERCEPT
     Indication: RHEUMATOID ARTHRITIS
     Dosage: 50 MG, QWK
     Route: 058

REACTIONS (13)
  - Colostomy closure [Unknown]
  - Pain [Not Recovered/Not Resolved]
  - Colectomy [Recovered/Resolved]
  - Diarrhoea [Recovering/Resolving]
  - C-reactive protein abnormal [Not Recovered/Not Resolved]
  - Injection site swelling [Unknown]
  - Injection site reaction [Recovered/Resolved]
  - Local swelling [Not Recovered/Not Resolved]
  - Injection site haemorrhage [Unknown]
  - Injection site pain [Unknown]
  - Injection site bruising [Not Recovered/Not Resolved]
  - Inflammation [Not Recovered/Not Resolved]
  - Red blood cell sedimentation rate abnormal [Not Recovered/Not Resolved]

NARRATIVE: CASE EVENT DATE: 2014
